FAERS Safety Report 7326235-6 (Version None)
Quarter: 2011Q1

REPORT INFORMATION
  Report Type: 
  Country: None (occurrence: None)
  Receive Date: 20110302
  Receipt Date: 20110224
  Transmission Date: 20110831
  Serious: Yes (Hospitalization)
  Sender: FDA-Public Use
  Company Number: A0903698A

PATIENT
  Sex: Female

DRUGS (1)
  1. VOTRIENT [Suspect]
     Dosage: 400MG PER DAY
     Route: 048
     Dates: start: 20101219

REACTIONS (10)
  - ABDOMINAL PAIN UPPER [None]
  - DIARRHOEA [None]
  - CHEST PAIN [None]
  - HOT FLUSH [None]
  - HYPERTENSION [None]
  - FATIGUE [None]
  - ABDOMINAL PAIN [None]
  - HYPERHIDROSIS [None]
  - ERUCTATION [None]
  - DYSPEPSIA [None]
